FAERS Safety Report 22998310 (Version 2)
Quarter: 2023Q4

REPORT INFORMATION
  Report Type: Spontaneous
  Country: JP (occurrence: None)
  Receive Date: 20230928
  Receipt Date: 20231016
  Transmission Date: 20240110
  Serious: Yes (Hospitalization)
  Sender: FDA-Public Use
  Company Number: JP-MDD US Operations-MDD202309-003496

PATIENT
  Age: 9 Decade
  Sex: Female

DRUGS (1)
  1. APOKYN [Suspect]
     Active Substance: APOMORPHINE HYDROCHLORIDE
     Indication: Product used for unknown indication
     Dosage: 30
     Route: 058

REACTIONS (2)
  - Loss of personal independence in daily activities [Unknown]
  - Drug dose omission by device [Unknown]
